FAERS Safety Report 7414622-7 (Version None)
Quarter: 2011Q2

REPORT INFORMATION
  Report Type: 
  Country: None (occurrence: None)
  Receive Date: 20110411
  Receipt Date: 20110411
  Transmission Date: 20111010
  Serious: Yes (Hospitalization)
  Sender: FDA-Public Use
  Company Number: None

PATIENT
  Sex: Female

DRUGS (3)
  1. ABRAXANE [Suspect]
  2. CARBOPLATIN [Suspect]
  3. AVASTIN [Suspect]

REACTIONS (5)
  - PURULENT DISCHARGE [None]
  - BLOODY DISCHARGE [None]
  - ERYTHEMA [None]
  - LOCAL SWELLING [None]
  - SKIN WARM [None]
